APPROVED DRUG PRODUCT: STERILE WATER FOR INJECTION IN PLASTIC CONTAINER
Active Ingredient: STERILE WATER FOR INJECTION
Strength: 100%
Dosage Form/Route: LIQUID;N/A
Application: N018632 | Product #002 | TE Code: AP
Applicant: BAXTER HEALTHCARE CORP
Approved: Apr 19, 1988 | RLD: Yes | RS: Yes | Type: RX